FAERS Safety Report 18182806 (Version 1)
Quarter: 2020Q3

REPORT INFORMATION
  Report Type: Report from Study
  Country: None (occurrence: US)
  Receive Date: 20200822
  Receipt Date: 20200822
  Transmission Date: 20201103
  Serious: Yes (Other)
  Sender: FDA-Public Use
  Company Number: US-ABBVIE-20K-163-3531495-00

PATIENT
  Sex: Female

DRUGS (1)
  1. HUMIRA [Suspect]
     Active Substance: ADALIMUMAB
     Indication: UVEITIS
     Dosage: CITRATE FREE
     Route: 058

REACTIONS (6)
  - Osteoarthritis [Unknown]
  - Blindness [Recovered/Resolved]
  - Headache [Unknown]
  - Seasonal allergy [Not Recovered/Not Resolved]
  - Migraine [Unknown]
  - Neck pain [Unknown]
